FAERS Safety Report 8137554-8 (Version None)
Quarter: 2012Q1

REPORT INFORMATION
  Report Type: 
  Country: None (occurrence: None)
  Receive Date: 20120215
  Receipt Date: 20120213
  Transmission Date: 20120608
  Serious: Yes (Hospitalization)
  Sender: FDA-Public Use
  Company Number: NL-JNJFOC-20120206610

PATIENT
  Age: 37 Year
  Sex: Female

DRUGS (7)
  1. GRANISETRON [Concomitant]
     Route: 065
  2. DEXAMETHASONE [Concomitant]
     Route: 065
  3. DOXORUBICIN HCL [Suspect]
     Indication: BREAST CANCER
     Route: 042
     Dates: start: 20101217, end: 20110401
  4. DOCETAXEL [Suspect]
     Indication: BREAST CANCER
     Route: 042
     Dates: start: 20101217, end: 20110401
  5. CYCLOPHOSPHAMIDE [Suspect]
     Indication: BREAST CANCER
     Route: 042
     Dates: start: 20101217, end: 20110401
  6. NEULASTA [Suspect]
     Indication: PROPHYLAXIS
     Route: 065
  7. ONDANSETRON [Concomitant]
     Route: 065

REACTIONS (1)
  - ERYSIPELAS [None]
